FAERS Safety Report 12301746 (Version 1)
Quarter: 2016Q2

REPORT INFORMATION
  Report Type: Spontaneous
  Country: CN (occurrence: CN)
  Receive Date: 20160425
  Receipt Date: 20160425
  Transmission Date: 20160815
  Serious: Yes (Hospitalization, Other)
  Sender: FDA-Public Use
  Company Number: CN-FRESENIUS KABI-FK201602094

PATIENT
  Age: 59 Year
  Sex: Female

DRUGS (15)
  1. ROPIVACAINE [Concomitant]
     Active Substance: ROPIVACAINE
     Route: 042
  2. OMEPRAZOLE. [Concomitant]
     Active Substance: OMEPRAZOLE
  3. LIDOCAINE HYDROCHLORIDE. [Concomitant]
     Active Substance: LIDOCAINE HYDROCHLORIDE
     Route: 042
  4. SEVOFLURANE. [Concomitant]
     Active Substance: SEVOFLURANE
  5. HEPARIN [Concomitant]
     Active Substance: HEPARIN SODIUM
  6. REMIFENTANIL HYDROCHLORIDE [Concomitant]
     Active Substance: REMIFENTANIL HYDROCHLORIDE
     Route: 042
  7. AMBROXOL [Concomitant]
     Active Substance: AMBROXOL
  8. PROPOFOL MCT FRESENIUS (NOT SPECIFIED) [Suspect]
     Active Substance: PROPOFOL
     Indication: INDUCTION AND MAINTENANCE OF ANAESTHESIA
     Route: 042
     Dates: start: 20150428, end: 20150428
  9. ETOMIDATE. [Concomitant]
     Active Substance: ETOMIDATE
     Route: 042
  10. FENTANYL. [Concomitant]
     Active Substance: FENTANYL
     Route: 042
  11. NIMOTOP [Concomitant]
     Active Substance: NIMODIPINE
  12. MIDAZOLAM [Suspect]
     Active Substance: MIDAZOLAM\MIDAZOLAM HYDROCHLORIDE
     Indication: INDUCTION AND MAINTENANCE OF ANAESTHESIA
     Route: 042
     Dates: start: 20150428, end: 20150428
  13. CEFUROXIME SODIUM. [Suspect]
     Active Substance: CEFUROXIME SODIUM
     Indication: ANTIBIOTIC PROPHYLAXIS
     Route: 042
     Dates: start: 20150428, end: 20150428
  14. CISATRACURIUM. [Concomitant]
     Active Substance: CISATRACURIUM
     Route: 042
  15. MANNITOL. [Concomitant]
     Active Substance: MANNITOL

REACTIONS (4)
  - Drug hypersensitivity [Recovering/Resolving]
  - Epidermolysis bullosa [Recovering/Resolving]
  - Skin exfoliation [Recovering/Resolving]
  - Drug eruption [Recovering/Resolving]

NARRATIVE: CASE EVENT DATE: 20150428
